FAERS Safety Report 16500727 (Version 1)
Quarter: 2019Q3

REPORT INFORMATION
  Report Type: Spontaneous
  Country: US (occurrence: US)
  Receive Date: 20190628
  Receipt Date: 20190628
  Transmission Date: 20191004
  Serious: Yes (Hospitalization)
  Sender: FDA-Public Use
  Company Number: None

PATIENT
  Age: 70 Year
  Sex: Male

DRUGS (10)
  1. ESCITALOPRAM TAB 20 MG [Concomitant]
     Active Substance: ESCITALOPRAM OXALATE
  2. SIMVASTATIN TAB 40 MG [Concomitant]
  3. JANTOVEN TAB 1 MG [Concomitant]
  4. RANITIDINE TAB 150 MG [Concomitant]
  5. MIRALAX POW 3350 NF [Concomitant]
  6. CLONAZEPAM TAB 0.5 MG [Concomitant]
  7. TRAZODONE TAB 50 MG [Concomitant]
  8. LEVOCYL TAB 75 MCG [Concomitant]
  9. AUSTEDO [Suspect]
     Active Substance: DEUTETRABENAZINE
     Indication: DYSKINESIA
     Dosage: ?          OTHER FREQUENCY:MORNING / EVENING;?
     Route: 048
     Dates: start: 20180806
  10. VITAMIN D-3 CAP 2000 UNIT [Concomitant]

REACTIONS (5)
  - Heart rate decreased [None]
  - Hypertension [None]
  - Dizziness [None]
  - Coronary artery bypass [None]
  - Headache [None]

NARRATIVE: CASE EVENT DATE: 20190626
